FAERS Safety Report 5268084-9 (Version None)
Quarter: 2007Q1

REPORT INFORMATION
  Report Type: 
  Country: None (occurrence: None)
  Receive Date: 20070316
  Receipt Date: 20070316
  Transmission Date: 20070707
  Serious: Yes (Hospitalization)
  Sender: FDA-Public Use
  Company Number: None

PATIENT
  Age: 65 Year
  Sex: Female
  Weight: 84.8226 kg

DRUGS (1)
  1. AMBIEN CR [Suspect]
     Indication: SLEEP DISORDER
     Dosage: PRN  MOUTH
     Route: 048
     Dates: start: 20060801, end: 20061001

REACTIONS (4)
  - AMNESIA [None]
  - CONVULSION [None]
  - IMPAIRED DRIVING ABILITY [None]
  - TRANSIENT ISCHAEMIC ATTACK [None]
